FAERS Safety Report 9322248 (Version 2)
Quarter: 2013Q3

REPORT INFORMATION
  Report Type: Report from Study
  Country: CH (occurrence: CH)
  Receive Date: 20130531
  Receipt Date: 20130719
  Transmission Date: 20140515
  Serious: Yes (Hospitalization)
  Sender: FDA-Public Use
  Company Number: CH-ELI_LILLY_AND_COMPANY-CH201305006231

PATIENT
  Age: 70 Year
  Sex: Female

DRUGS (14)
  1. PEMETREXED [Suspect]
     Indication: NON-SMALL CELL LUNG CANCER
     Dosage: 900 MG, UNK
     Route: 042
     Dates: start: 20130426, end: 20130426
  2. CARBOPLATIN [Suspect]
     Indication: NON-SMALL CELL LUNG CANCER
     Dosage: 500 MG, UNK
     Route: 042
     Dates: start: 20130426, end: 20130426
  3. DUROGESIC [Concomitant]
     Dosage: 100 UG, EVERY 72 HOURS
     Route: 062
  4. SIFROL [Concomitant]
     Dosage: 0.25 MG, PRN
     Route: 048
  5. ESOMEP [Concomitant]
     Dosage: 40 MG, UNK
     Route: 048
  6. SPIRICORT [Concomitant]
     Dosage: 20 MG, UNK
  7. PARAGAR [Concomitant]
     Indication: CONSTIPATION
     Dosage: 10 ML, PRN (MAX THREE TIMES A DAY)
  8. NOVALGIN                           /06276704/ [Concomitant]
     Indication: PAIN
     Dosage: 20 GTT, PRN (MAX FOUR TIMES A DAY)
  9. OXYNORM [Concomitant]
     Indication: PAIN
     Dosage: 1 ML, PRN (MAX SIX TIMES A DAY)
  10. PASPERTIN                          /00041902/ [Concomitant]
     Indication: NAUSEA
     Dosage: 10 MG, PRN (MAX THREE TIMES A DAY)
  11. SEQUASE [Concomitant]
     Dosage: 25 MG, UNK
  12. FOLIC ACID [Concomitant]
  13. VITAMIN B12 [Concomitant]
  14. DEXAMETHASONE [Concomitant]

REACTIONS (2)
  - Neutropenia [Recovered/Resolved]
  - Thrombocytopenia [Recovered/Resolved]
